FAERS Safety Report 7135960-1 (Version None)
Quarter: 2010Q4

REPORT INFORMATION
  Report Type: 
  Country: None (occurrence: None)
  Receive Date: 20101204
  Receipt Date: 20101117
  Transmission Date: 20110411
  Serious: Yes (Other)
  Sender: FDA-Public Use
  Company Number: US-BAYER-201041812NA

PATIENT

DRUGS (3)
  1. MIRENA [Suspect]
     Indication: CONTRACEPTION
     Route: 015
     Dates: start: 20050701
  2. CONTRACEPTIVES NOS [Concomitant]
     Indication: UTERINE CERVIX DILATION PROCEDURE
  3. UNCODEABLE ^UNCLASSIFIABLE^ [Concomitant]
     Indication: UTERINE CERVIX DILATION PROCEDURE

REACTIONS (4)
  - COMPLICATION OF DEVICE REMOVAL [None]
  - DEVICE DISLOCATION [None]
  - EXPIRED DRUG ADMINISTERED [None]
  - PAIN [None]
